FAERS Safety Report 23349036 (Version 1)
Quarter: 2023Q4

REPORT INFORMATION
  Report Type: Spontaneous
  Country: NZ (occurrence: NZ)
  Receive Date: 20231229
  Receipt Date: 20231229
  Transmission Date: 20240110
  Serious: Yes (Death)
  Sender: FDA-Public Use
  Company Number: None

PATIENT
  Age: 71 Year
  Sex: Male

DRUGS (2)
  1. INSULIN HUMAN [Suspect]
     Active Substance: INSULIN HUMAN
     Indication: Product used for unknown indication
     Dosage: UNKNOWN
     Route: 058
     Dates: start: 20190101, end: 20220511
  2. POZIOTINIB [Suspect]
     Active Substance: POZIOTINIB
     Indication: Product used for unknown indication
     Dosage: UNKNOWN
     Route: 058
     Dates: start: 20190101, end: 20220511

REACTIONS (4)
  - Complication associated with device [Fatal]
  - Death [Fatal]
  - Hypoglycaemia [Fatal]
  - Medication error [Fatal]

NARRATIVE: CASE EVENT DATE: 20220511
